FAERS Safety Report 19121138 (Version 4)
Quarter: 2021Q4

REPORT INFORMATION
  Report Type: Report from Study
  Country: JP (occurrence: JP)
  Receive Date: 20210412
  Receipt Date: 20211216
  Transmission Date: 20220303
  Serious: Yes (Hospitalization)
  Sender: FDA-Public Use
  Company Number: JP-EISAI-202100146_BOLD-LF_C_1

PATIENT
  Age: 49 Year
  Sex: Female
  Weight: 50 kg

DRUGS (13)
  1. ERIBULIN [Suspect]
     Active Substance: ERIBULIN
     Indication: Oesophageal carcinoma
     Route: 041
     Dates: start: 20210304, end: 20210304
  2. ERIBULIN [Suspect]
     Active Substance: ERIBULIN
     Route: 041
     Dates: start: 20210325, end: 20211202
  3. NIVOLUMAB [Suspect]
     Active Substance: NIVOLUMAB
     Indication: Oesophageal carcinoma
     Route: 041
     Dates: start: 20210304, end: 20211202
  4. MAGNESIUM OXIDE [Concomitant]
     Active Substance: MAGNESIUM OXIDE
     Indication: Product used for unknown indication
     Route: 050
     Dates: start: 20200728
  5. SODIUM CHLORIDE [Concomitant]
     Active Substance: SODIUM CHLORIDE
     Indication: Product used for unknown indication
     Route: 048
     Dates: start: 20200514
  6. ALLOID G [Concomitant]
     Active Substance: SODIUM ALGINATE
     Indication: Prophylaxis
     Route: 048
     Dates: start: 20200728
  7. ACETAMINOPHEN [Concomitant]
     Active Substance: ACETAMINOPHEN
     Indication: Product used for unknown indication
     Route: 048
     Dates: start: 20200630
  8. ELOBIXIBAT [Concomitant]
     Active Substance: ELOBIXIBAT
     Indication: Product used for unknown indication
     Route: 050
     Dates: start: 20200702
  9. VALPROATE SODIUM [Concomitant]
     Active Substance: VALPROATE SODIUM
     Indication: Product used for unknown indication
     Route: 048
  10. OXINORM [Concomitant]
     Indication: Product used for unknown indication
     Route: 048
     Dates: start: 20200612
  11. ANTEBATE:OINTMENT [Concomitant]
     Indication: Product used for unknown indication
     Route: 061
     Dates: start: 20210304
  12. GENTAMICIN [Concomitant]
     Active Substance: GENTAMICIN
     Indication: Product used for unknown indication
     Route: 061
     Dates: start: 20210311
  13. RINDERON V [Concomitant]
     Active Substance: BETAMETHASONE VALERATE
     Indication: Product used for unknown indication
     Route: 061
     Dates: start: 20210315

REACTIONS (2)
  - Febrile neutropenia [Recovered/Resolved]
  - Adrenal insufficiency [Recovering/Resolving]

NARRATIVE: CASE EVENT DATE: 20210403
